FAERS Safety Report 15676071 (Version 2)
Quarter: 2018Q4

REPORT INFORMATION
  Report Type: Spontaneous
  Country: ZA (occurrence: ZA)
  Receive Date: 20181130
  Receipt Date: 20181221
  Transmission Date: 20190205
  Serious: Yes (Hospitalization)
  Sender: FDA-Public Use
  Company Number: ZA-PFIZER INC-2018489736

PATIENT
  Age: 77 Year
  Sex: Female

DRUGS (12)
  1. CELEBREX [Suspect]
     Active Substance: CELECOXIB
     Indication: ARTHRITIS
     Dosage: 200 MG, UNK
  2. XYZAL [Suspect]
     Active Substance: LEVOCETIRIZINE DIHYDROCHLORIDE
     Dosage: 5 MG, UNK
  3. AVAMYS [Suspect]
     Active Substance: FLUTICASONE FUROATE
     Dosage: 27 UG, UNK
  4. NECTIZOLE [Suspect]
     Active Substance: ESOMEPRAZOLE MAGNESIUM
     Dosage: 40 MG, UNK
  5. TRUSTAN [Suspect]
     Active Substance: ESOMEPRAZOLE
     Dosage: 40 MG, UNK
  6. LENDITRO [Suspect]
     Active Substance: OXYBUTYNIN CHLORIDE
     Dosage: 5 MG, UNK
  7. CELEBREX [Suspect]
     Active Substance: CELECOXIB
     Indication: KNEE OPERATION
  8. ULTIPOT [Suspect]
     Active Substance: POTASSIUM CHLORIDE
     Dosage: 600 MG, UNK
  9. CELEBREX [Suspect]
     Active Substance: CELECOXIB
     Indication: ARTHRALGIA
  10. CIPLAVASC [Suspect]
     Active Substance: AMLODIPINE BESYLATE
     Dosage: 5 MG, UNK
  11. CARLOC [Suspect]
     Active Substance: CARVEDILOL
     Dosage: 6.25 MG, UNK
  12. MYLAN FUROSEMIDE [Suspect]
     Active Substance: FUROSEMIDE
     Dosage: 40 MG, UNK

REACTIONS (3)
  - Hiatus hernia [Unknown]
  - Rhinorrhoea [Unknown]
  - Heart rate decreased [Unknown]
